FAERS Safety Report 4967565-2 (Version None)
Quarter: 2006Q2

REPORT INFORMATION
  Report Type: 
  Country: None (occurrence: None)
  Receive Date: 20060410
  Receipt Date: 20060406
  Transmission Date: 20061013
  Serious: Yes (Hospitalization)
  Sender: FDA-Public Use
  Company Number: FR-GLAXOSMITHKLINE-B0419502A

PATIENT
  Age: 79 Year
  Sex: Male

DRUGS (1)
  1. ZELITREX [Suspect]
     Indication: HERPES ZOSTER
     Dosage: 500MG SEE DOSAGE TEXT
     Route: 048
     Dates: start: 20060222, end: 20060223

REACTIONS (5)
  - AGITATION [None]
  - CONFUSIONAL STATE [None]
  - DIALYSIS [None]
  - HALLUCINATION [None]
  - OVERDOSE [None]
